FAERS Safety Report 11419725 (Version 1)
Quarter: 2015Q3

REPORT INFORMATION
  Report Type: Report from Study
  Country: IN (occurrence: IN)
  Receive Date: 20150826
  Receipt Date: 20150826
  Transmission Date: 20151125
  Serious: Yes (Hospitalization)
  Sender: FDA-Public Use
  Company Number: IN-UNITED THERAPEUTICS-REM_00151_2005

PATIENT
  Age: 18 Year
  Sex: Male
  Weight: 45 kg

DRUGS (8)
  1. FRUSEMIDE [Concomitant]
     Active Substance: FUROSEMIDE
  2. TREPROSTINIL SODIUM (SQ/IV) [Suspect]
     Active Substance: TREPROSTINIL SODIUM
     Dosage: 60 NG/KG/MIN
     Route: 042
     Dates: start: 20051002, end: 20051004
  3. TREPROSTINIL SODIUM (SQ/IV) [Suspect]
     Active Substance: TREPROSTINIL SODIUM
     Indication: PULMONARY HYPERTENSION
     Dosage: 70 NG/KG/MIN
     Route: 042
     Dates: start: 20050930, end: 20051001
  4. TREPROSTINIL SODIUM (SQ/IV) [Suspect]
     Active Substance: TREPROSTINIL SODIUM
     Dosage: 80 NG/KG/MIN
     Route: 042
     Dates: start: 20050530, end: 20050929
  5. SPIRONOLACTONE. [Concomitant]
     Active Substance: SPIRONOLACTONE
  6. ALPRAZOLAM. [Concomitant]
     Active Substance: ALPRAZOLAM
  7. T-ACENOCOUMAROL [Concomitant]
  8. TREPROSTINIL SODIUM (SQ/IV) [Suspect]
     Active Substance: TREPROSTINIL SODIUM
     Dosage: 50 NG/KG/MIN
     Route: 042
     Dates: start: 20051005

REACTIONS (3)
  - Deep vein thrombosis [Recovered/Resolved]
  - Pseudomonas infection [Recovered/Resolved]
  - Thrombophlebitis [Recovered/Resolved]

NARRATIVE: CASE EVENT DATE: 20050910
